FAERS Safety Report 10022909 (Version 1)
Quarter: 2014Q1

REPORT INFORMATION
  Report Type: Spontaneous
  Country: CA (occurrence: CA)
  Receive Date: 20140319
  Receipt Date: 20140319
  Transmission Date: 20141002
  Serious: Yes (Other)
  Sender: FDA-Public Use
  Company Number: CA-009507513-1403CAN005809

PATIENT
  Age: 62 Year
  Sex: Female

DRUGS (3)
  1. VICTRELIS [Suspect]
     Indication: CHRONIC HEPATITIS C
     Dosage: WITH FOOD 800 MG, TID
     Route: 048
     Dates: start: 20131127, end: 20140227
  2. COPEGUS [Suspect]
     Indication: CHRONIC HEPATITIS C
     Dosage: 1000 MG, QD
     Route: 048
     Dates: start: 20131106, end: 20140227
  3. PEGASYS [Suspect]
     Indication: CHRONIC HEPATITIS C
     Dosage: FORM: 0.5 ML PRE-FILLED SYRINGE. 180 MICROGRAM, QW
     Route: 058
     Dates: start: 20131106, end: 20140227

REACTIONS (2)
  - Weight decreased [Recovering/Resolving]
  - Haemoglobin decreased [Unknown]
